FAERS Safety Report 16872635 (Version 1)
Quarter: 2019Q4

REPORT INFORMATION
  Report Type: Spontaneous
  Country: US (occurrence: US)
  Receive Date: 20191001
  Receipt Date: 20191001
  Transmission Date: 20200122
  Serious: Yes (Hospitalization, Other)
  Sender: FDA-Public Use
  Company Number: US-CPL-001255

PATIENT
  Age: 83 Year
  Sex: Female

DRUGS (7)
  1. RIVASTIGMINE/RIVASTIGMINE TARTRATE [Suspect]
     Active Substance: RIVASTIGMINE
     Indication: DEMENTIA WITH LEWY BODIES
     Dosage: 4.6 MG/24-HOUR PATCH
  2. DONEPEZIL. [Suspect]
     Active Substance: DONEPEZIL
     Indication: DEMENTIA WITH LEWY BODIES
     Dosage: SWITCHED BACK TO DONEPEZIL
  3. LOSARTAN. [Concomitant]
     Active Substance: LOSARTAN
     Indication: HYPERTENSION
     Route: 048
  4. CLONAZEPAM. [Concomitant]
     Active Substance: CLONAZEPAM
     Indication: ANXIETY
     Dosage: AS NEEDED AT NIGHT
     Route: 048
  5. AMLODIPINE [Concomitant]
     Active Substance: AMLODIPINE BESYLATE
     Indication: HYPERTENSION
     Route: 048
  6. GABAPENTIN. [Concomitant]
     Active Substance: GABAPENTIN
     Indication: NEUROPATHY PERIPHERAL
     Route: 048
  7. AMOXICILLIN. [Suspect]
     Active Substance: AMOXICILLIN
     Indication: TOOTH DISORDER

REACTIONS (10)
  - Confusional state [Recovered/Resolved]
  - Anxiety [Recovered/Resolved]
  - Withdrawal syndrome [Unknown]
  - Fall [Unknown]
  - Clostridium difficile infection [Recovered/Resolved]
  - Hallucination, visual [Recovered/Resolved]
  - Mobility decreased [Recovered/Resolved]
  - Cognitive disorder [Recovered/Resolved]
  - Insomnia [Recovered/Resolved]
  - Mood altered [Recovered/Resolved]
